FAERS Safety Report 5240746-9 (Version None)
Quarter: 2007Q1

REPORT INFORMATION
  Report Type: 
  Country: None (occurrence: None)
  Receive Date: 20061208
  Receipt Date: 20050524
  Transmission Date: 20070707
  Serious: Yes (Other)
  Sender: FDA-Public Use
  Company Number: 2005UW05392

PATIENT
  Age: 77 Year
  Sex: Female
  Weight: 77.564 kg

DRUGS (5)
  1. CRESTOR [Suspect]
     Indication: BLOOD CHOLESTEROL INCREASED
     Dosage: 10 MG PO
     Route: 048
  2. THYROID TAB [Concomitant]
  3. .. [Concomitant]
  4. BEXTRA [Concomitant]
  5. BEXTRA [Concomitant]

REACTIONS (5)
  - FLATULENCE [None]
  - HEART RATE INCREASED [None]
  - MUSCLE SPASMS [None]
  - MYALGIA [None]
  - OEDEMA PERIPHERAL [None]
